FAERS Safety Report 5744726-6 (Version None)
Quarter: 2008Q2

REPORT INFORMATION
  Report Type: 
  Country: None (occurrence: None)
  Receive Date: 20080516
  Receipt Date: 20080507
  Transmission Date: 20081010
  Serious: Yes (Hospitalization)
  Sender: FDA-Public Use
  Company Number: SPV1-2008-01015

PATIENT
  Age: 57 Year
  Sex: Female

DRUGS (19)
  1. CARBATROL [Suspect]
     Indication: ACCIDENTAL EXPOSURE
  2. CLONAPIN(CLONAZEPAM) [Suspect]
     Indication: ACCIDENTAL EXPOSURE
  3. TEGRETOL [Suspect]
     Indication: ACCIDENTAL EXPOSURE
  4. LAMICTAL [Suspect]
     Indication: ACCIDENTAL EXPOSURE
  5. ZOLOFT [Suspect]
     Indication: ACCIDENTAL EXPOSURE
  6. COLACE (DOCUSATE SODIUM) [Suspect]
     Indication: ACCIDENTAL EXPOSURE
  7. MELATONIN(MELATONIN) [Suspect]
     Indication: ACCIDENTAL EXPOSURE
  8. BLINDED THERAPY [Concomitant]
  9. AMITRIPTYLINE HCL [Concomitant]
  10. IMITREX [Concomitant]
  11. TETRACYCLINE [Concomitant]
  12. PROPRANOLOL [Concomitant]
  13. TYLENOL W/ CODEINE NO. 3 [Concomitant]
  14. GLUCOSAMINE + CHONDROITIN (CHONDROITIN SULFATE, GLUCOSAMINE) [Concomitant]
  15. VITAMIN NOS (VITAMIN NOS) [Concomitant]
  16. VITAMIN E [Concomitant]
  17. PEPCID [Concomitant]
  18. ADVIL [Concomitant]
  19. MELATONIN (MELATONIN) [Concomitant]

REACTIONS (5)
  - ACCIDENTAL EXPOSURE [None]
  - CONFUSIONAL STATE [None]
  - INCONTINENCE [None]
  - LETHARGY [None]
  - UNRESPONSIVE TO STIMULI [None]
